FAERS Safety Report 5676400-9 (Version None)
Quarter: 2008Q1

REPORT INFORMATION
  Report Type: 
  Country: None (occurrence: None)
  Receive Date: 20080321
  Receipt Date: 20080312
  Transmission Date: 20080703
  Serious: Yes (Hospitalization, Other)
  Sender: FDA-Public Use
  Company Number: CA-PFIZER INC-2008023608

PATIENT
  Age: 70 Year
  Sex: Male

DRUGS (3)
  1. ZITHROMAX [Suspect]
     Indication: UPPER RESPIRATORY TRACT INFECTION
     Dates: start: 20080304, end: 20080304
  2. ZITHROMAX [Suspect]
     Dates: start: 20080305, end: 20080308
  3. ACCURETIC [Concomitant]

REACTIONS (2)
  - PETECHIAE [None]
  - PLATELET COUNT INCREASED [None]
